FAERS Safety Report 8344680-7 (Version None)
Quarter: 2012Q2

REPORT INFORMATION
  Report Type: 
  Country: None (occurrence: None)
  Receive Date: 20120508
  Receipt Date: 20120423
  Transmission Date: 20120825
  Serious: Yes (Other)
  Sender: FDA-Public Use
  Company Number: US-ROCHE-1062188

PATIENT
  Sex: Female
  Weight: 102.6 kg

DRUGS (3)
  1. PREDNISONE TAB [Concomitant]
     Indication: LUNG TRANSPLANT
     Dosage: TAPERED OVER FOUR MONTHS TO 5MG
  2. VALCYTE [Suspect]
     Indication: ANTIVIRAL PROPHYLAXIS
     Dosage: DAILY
     Route: 048
     Dates: start: 20111216
  3. MYCOPHENOLATE MOFETIL [Concomitant]
     Indication: LUNG TRANSPLANT
     Dates: end: 20111227

REACTIONS (3)
  - LEUKOPENIA [None]
  - CYTOMEGALOVIRUS INFECTION [None]
  - DIARRHOEA [None]
